FAERS Safety Report 18051426 (Version 1)
Quarter: 2020Q3

REPORT INFORMATION
  Report Type: Report from Study
  Country: None (occurrence: US)
  Receive Date: 20200722
  Receipt Date: 20200722
  Transmission Date: 20201103
  Serious: Yes (Other)
  Sender: FDA-Public Use
  Company Number: US-ABBVIE-20K-163-3490481-00

PATIENT
  Sex: Female

DRUGS (1)
  1. HUMIRA [Suspect]
     Active Substance: ADALIMUMAB
     Indication: PSORIATIC ARTHROPATHY
     Route: 058
     Dates: end: 2020

REACTIONS (7)
  - Streptococcal infection [Unknown]
  - Asthma [Not Recovered/Not Resolved]
  - Impaired healing [Unknown]
  - Arthralgia [Recovering/Resolving]
  - Joint injury [Unknown]
  - Psoriasis [Unknown]
  - Arthropathy [Unknown]

NARRATIVE: CASE EVENT DATE: 2020
